FAERS Safety Report 19660121 (Version 1)
Quarter: 2021Q3

REPORT INFORMATION
  Report Type: Spontaneous
  Country: US (occurrence: US)
  Receive Date: 20210805
  Receipt Date: 20210805
  Transmission Date: 20211014
  Serious: No
  Sender: FDA-Public Use
  Company Number: None

PATIENT
  Age: 34 Year
  Sex: Female
  Weight: 99 kg

DRUGS (1)
  1. HIBICLENS [Suspect]
     Active Substance: CHLORHEXIDINE GLUCONATE
     Indication: PRODUCT USED FOR UNKNOWN INDICATION
     Dosage: ?          QUANTITY:.5 BOTTLE EACH SHOWER;?
     Route: 061
     Dates: start: 20210726, end: 20210727

REACTIONS (2)
  - Rash [None]
  - Skin discolouration [None]

NARRATIVE: CASE EVENT DATE: 20210726
